FAERS Safety Report 6062269-X (Version None)
Quarter: 2009Q1

REPORT INFORMATION
  Report Type: 
  Country: None (occurrence: None)
  Receive Date: 20090203
  Receipt Date: 20090126
  Transmission Date: 20090719
  Serious: Yes (Hospitalization, Other)
  Sender: FDA-Public Use
  Company Number: US-PURDUE-USA_2009_0036666

PATIENT
  Age: 80 Year
  Sex: Male

DRUGS (2)
  1. OXYCONTIN [Suspect]
     Indication: TRIGEMINAL NEURALGIA
     Dosage: UNK MG, UNK
     Route: 048
  2. LYRICA [Suspect]
     Indication: TRIGEMINAL NEURALGIA
     Dosage: UNK MG, UNK
     Route: 048

REACTIONS (2)
  - MALAISE [None]
  - PNEUMONIA [None]
